FAERS Safety Report 18472929 (Version 1)
Quarter: 2020Q4

REPORT INFORMATION
  Report Type: Spontaneous
  Country: US (occurrence: US)
  Receive Date: 20201104
  Receipt Date: 20201104
  Transmission Date: 20210114
  Serious: Yes (Other)
  Sender: FDA-Public Use
  Company Number: None

PATIENT
  Age: 53 Year
  Sex: Male
  Weight: 70.2 kg

DRUGS (1)
  1. ATORVASTATIN CALCIUM 20MG [Suspect]
     Active Substance: ATORVASTATIN CALCIUM
     Indication: BLOOD CHOLESTEROL INCREASED
     Dosage: ?          QUANTITY:30 TABLET(S);?
     Route: 048
     Dates: start: 20200921, end: 20201007

REACTIONS (8)
  - Product quality issue [None]
  - Pain in extremity [None]
  - Back pain [None]
  - Musculoskeletal pain [None]
  - Myalgia [None]
  - Self-medication [None]
  - Groin pain [None]
  - Muscle strain [None]

NARRATIVE: CASE EVENT DATE: 20201008
